FAERS Safety Report 25014999 (Version 1)
Quarter: 2025Q1

REPORT INFORMATION
  Report Type: Spontaneous
  Country: CN (occurrence: CN)
  Receive Date: 20250226
  Receipt Date: 20250226
  Transmission Date: 20250409
  Serious: Yes (Death, Hospitalization, Other)
  Sender: SANDOZ
  Company Number: CN-SANDOZ-SDZ2025CN012246

PATIENT
  Age: 19 Year
  Sex: Male
  Weight: 61.5 kg

DRUGS (8)
  1. AMPHOTERICIN B [Suspect]
     Active Substance: AMPHOTERICIN B
     Indication: Precursor T-lymphoblastic lymphoma/leukaemia
     Dosage: 300 MG, QD
     Route: 065
  2. AMPHOTERICIN B [Suspect]
     Active Substance: AMPHOTERICIN B
     Indication: Fungaemia
     Route: 065
  3. ISAVUCONAZOLE [Suspect]
     Active Substance: ISAVUCONAZOLE
     Indication: Fungaemia
     Dosage: 200 MG, Q12H
     Route: 065
  4. ISAVUCONAZOLE [Suspect]
     Active Substance: ISAVUCONAZOLE
     Indication: Precursor T-lymphoblastic lymphoma/leukaemia
  5. MICAFUNGIN [Suspect]
     Active Substance: MICAFUNGIN SODIUM
     Indication: Fungaemia
     Dosage: 100 MG, QD
     Route: 065
  6. MICAFUNGIN [Suspect]
     Active Substance: MICAFUNGIN SODIUM
     Indication: Precursor T-lymphoblastic lymphoma/leukaemia
  7. VORICONAZOLE [Suspect]
     Active Substance: VORICONAZOLE
     Indication: Fungaemia
     Dosage: 200 MG, Q12H
     Route: 065
  8. VORICONAZOLE [Suspect]
     Active Substance: VORICONAZOLE
     Indication: Precursor T-lymphoblastic lymphoma/leukaemia
     Dosage: 400 MG, Q12H
     Route: 065

REACTIONS (1)
  - Drug ineffective [Fatal]
